FAERS Safety Report 21023681 (Version 1)
Quarter: 2022Q2

REPORT INFORMATION
  Report Type: Spontaneous
  Country: US (occurrence: US)
  Receive Date: 20220629
  Receipt Date: 20220629
  Transmission Date: 20220721
  Serious: Yes (Hospitalization)
  Sender: FDA-Public Use
  Company Number: US-KARYOPHARM-2022KPT000678

PATIENT

DRUGS (23)
  1. XPOVIO [Suspect]
     Active Substance: SELINEXOR
     Indication: Plasma cell myeloma
     Dosage: 60 MG, WEEKLY
     Route: 048
     Dates: start: 20220613, end: 202206
  2. POMALYST [Concomitant]
     Active Substance: POMALIDOMIDE
     Indication: Plasma cell myeloma
     Dosage: 4 MG, QD
     Route: 048
  3. ALLOPURINOL [Concomitant]
     Active Substance: ALLOPURINOL
  4. CLONIDINE [Concomitant]
     Active Substance: CLONIDINE
  5. PROCHLORPERAZINE [Concomitant]
     Active Substance: PROCHLORPERAZINE
  6. PROMETHAZINE [Concomitant]
     Active Substance: PROMETHAZINE HYDROCHLORIDE
  7. ARMOUR THYROID [Concomitant]
     Active Substance: THYROID, PORCINE
  8. TRAMADOL [Concomitant]
     Active Substance: TRAMADOL
  9. VALTREX [Concomitant]
     Active Substance: VALACYCLOVIR HYDROCHLORIDE
  10. GABAPENTIN [Concomitant]
     Active Substance: GABAPENTIN
  11. FUROSEMIDE [Concomitant]
     Active Substance: FUROSEMIDE
  12. DIOVAN [Concomitant]
     Active Substance: VALSARTAN
  13. ISATUXIMAB [Concomitant]
     Active Substance: ISATUXIMAB
  14. ELIQUIS [Concomitant]
     Active Substance: APIXABAN
  15. SPIRONOLACTONE [Concomitant]
     Active Substance: SPIRONOLACTONE
  16. SERTRALINE [Concomitant]
     Active Substance: SERTRALINE HYDROCHLORIDE
  17. COLESTIPOL [Concomitant]
     Active Substance: COLESTIPOL
  18. PROPAFENONE [Concomitant]
     Active Substance: PROPAFENONE
  19. POTASSIUM CHLORIDE [Concomitant]
     Active Substance: POTASSIUM CHLORIDE
  20. BYSTOLIC [Concomitant]
     Active Substance: NEBIVOLOL HYDROCHLORIDE
  21. DRISDOL [Concomitant]
     Active Substance: ERGOCALCIFEROL
  22. GLUCOTROL [Concomitant]
     Active Substance: GLIPIZIDE
  23. OXYCODONE [Concomitant]
     Active Substance: OXYCODONE

REACTIONS (6)
  - Diarrhoea [Recovering/Resolving]
  - Dehydration [Recovering/Resolving]
  - Gastrointestinal pain [Unknown]
  - Pain in extremity [Unknown]
  - Fatigue [Unknown]
  - Decreased appetite [Unknown]

NARRATIVE: CASE EVENT DATE: 20220601
